FAERS Safety Report 25239769 (Version 2)
Quarter: 2025Q2

REPORT INFORMATION
  Report Type: Spontaneous
  Country: JP (occurrence: JP)
  Receive Date: 20250425
  Receipt Date: 20250602
  Transmission Date: 20250716
  Serious: Yes (Death, Other)
  Sender: ALEXION PHARMACEUTICALS
  Company Number: JP-ASTRAZENECA-250040563_032620_P_1

PATIENT
  Age: 77 Year

DRUGS (4)
  1. FASENRA [Suspect]
     Active Substance: BENRALIZUMAB
     Indication: Eosinophilic granulomatosis with polyangiitis
     Dosage: 30 MILLIGRAM, Q4W
  2. ADRENAL [Concomitant]
     Active Substance: EPINEPHRINE
     Route: 065
  3. PREDONINE [Concomitant]
     Active Substance: PREDNISOLONE
  4. VONOPRAZAN FUMARATE [Concomitant]
     Active Substance: VONOPRAZAN FUMARATE
     Route: 065

REACTIONS (2)
  - Pneumonia bacterial [Fatal]
  - Sepsis [Fatal]
